FAERS Safety Report 21194808 (Version 2)
Quarter: 2022Q3

REPORT INFORMATION
  Report Type: Report from Study
  Country: IT (occurrence: IT)
  Receive Date: 20220810
  Receipt Date: 20220815
  Transmission Date: 20221027
  Serious: Yes (Life-Threatening, Other)
  Sender: FDA-Public Use
  Company Number: IT-PFM-2022-06056

PATIENT

DRUGS (3)
  1. ENCORAFENIB [Suspect]
     Active Substance: ENCORAFENIB
     Indication: Colorectal cancer metastatic
     Dosage: 300 MG, DAILY
     Route: 065
  2. CETUXIMAB [Suspect]
     Active Substance: CETUXIMAB
     Indication: Colorectal cancer metastatic
     Dosage: 400 MG/M2 WEEKLY AS AN INITIAL DOSE
     Route: 065
  3. CETUXIMAB [Suspect]
     Active Substance: CETUXIMAB
     Dosage: 250 MG/M2, WEEKLY AS SUBSEQUENT DOSES, IN 28-DAY CYCLES
     Route: 065

REACTIONS (13)
  - Intestinal obstruction [Unknown]
  - Anaemia [Unknown]
  - Blood creatinine increased [Unknown]
  - Arthralgia [Unknown]
  - Asthenia [Unknown]
  - Rash [Unknown]
  - Nausea [Unknown]
  - Diarrhoea [Unknown]
  - Decreased appetite [Unknown]
  - Vomiting [Unknown]
  - Ocular toxicity [Unknown]
  - Melanocytic naevus [Unknown]
  - Transaminases increased [Unknown]
